APPROVED DRUG PRODUCT: EVEROLIMUS
Active Ingredient: EVEROLIMUS
Strength: 7.5MG
Dosage Form/Route: TABLET;ORAL
Application: A214182 | Product #003 | TE Code: AB
Applicant: BIOCON PHARMA LTD
Approved: Feb 11, 2021 | RLD: No | RS: No | Type: RX